FAERS Safety Report 24541355 (Version 1)
Quarter: 2024Q4

REPORT INFORMATION
  Report Type: Spontaneous
  Country: CA (occurrence: CA)
  Receive Date: 20241023
  Receipt Date: 20241023
  Transmission Date: 20250114
  Serious: Yes (Death, Life-Threatening, Hospitalization, Disabling, Other)
  Sender: BAUSCH AND LOMB
  Company Number: CA-BAUSCH-BL-2024-015434

PATIENT
  Sex: Female

DRUGS (5)
  1. DICLOFENAC [Suspect]
     Active Substance: DICLOFENAC
     Indication: Rheumatoid arthritis
     Dosage: 2 ADMINISTRATIONS
     Route: 065
  2. DICLOFENAC SODIUM [Suspect]
     Active Substance: DICLOFENAC SODIUM
     Indication: Product used for unknown indication
     Route: 065
  3. DESOXIMETASONE [Suspect]
     Active Substance: DESOXIMETASONE
     Indication: Rheumatoid arthritis
     Dosage: 2 ADMINISTRATIONS
     Route: 065
  4. DESOXIMETASONE [Suspect]
     Active Substance: DESOXIMETASONE
     Route: 061
  5. DESOXIMETASONE [Suspect]
     Active Substance: DESOXIMETASONE
     Dosage: 2 ADMINISTRATIONS
     Route: 003

REACTIONS (104)
  - Abdominal discomfort [Fatal]
  - Adjustment disorder with depressed mood [Fatal]
  - Amnesia [Fatal]
  - Anti-cyclic citrullinated peptide antibody positive [Fatal]
  - Arthralgia [Fatal]
  - Arthropathy [Fatal]
  - Back disorder [Fatal]
  - Blister [Fatal]
  - Blood cholesterol increased [Fatal]
  - Breast cancer stage II [Fatal]
  - Chest pain [Fatal]
  - Condition aggravated [Fatal]
  - Contusion [Fatal]
  - Delirium [Fatal]
  - Disability [Fatal]
  - Discomfort [Fatal]
  - Dislocation of vertebra [Fatal]
  - Fibromyalgia [Fatal]
  - Gait disturbance [Fatal]
  - Gait inability [Fatal]
  - Mobility decreased [Fatal]
  - Gastrointestinal disorder [Fatal]
  - General physical health deterioration [Fatal]
  - Glossodynia [Fatal]
  - General symptom [Fatal]
  - Grip strength decreased [Fatal]
  - Hand deformity [Fatal]
  - Helicobacter infection [Fatal]
  - Hip arthroplasty [Fatal]
  - Hypoaesthesia [Fatal]
  - Injury [Fatal]
  - Hypercholesterolaemia [Fatal]
  - Ill-defined disorder [Fatal]
  - Irritable bowel syndrome [Fatal]
  - Infusion related reaction [Fatal]
  - Joint range of motion decreased [Fatal]
  - Muscle injury [Fatal]
  - Musculoskeletal stiffness [Fatal]
  - Knee arthroplasty [Fatal]
  - Impaired healing [Fatal]
  - Pain [Fatal]
  - Joint swelling [Fatal]
  - Lower respiratory tract infection [Fatal]
  - Pustular psoriasis [Fatal]
  - Pericarditis [Fatal]
  - Memory impairment [Fatal]
  - Wound [Fatal]
  - Walking aid user [Fatal]
  - Sleep disorder due to general medical condition, insomnia type [Fatal]
  - Peripheral swelling [Fatal]
  - Migraine [Fatal]
  - Subcutaneous drug absorption impaired [Fatal]
  - Pain in extremity [Fatal]
  - Pemphigus [Fatal]
  - Folliculitis [Fatal]
  - Rash vesicular [Fatal]
  - X-ray abnormal [Fatal]
  - Wheezing [Fatal]
  - Wound infection [Fatal]
  - Psoriatic arthropathy [Fatal]
  - Swollen joint count increased [Fatal]
  - Psoriasis [Fatal]
  - Swelling [Fatal]
  - Nasopharyngitis [Fatal]
  - Synovitis [Fatal]
  - Myositis [Fatal]
  - Systemic lupus erythematosus [Fatal]
  - Sinusitis [Fatal]
  - Sleep disorder [Fatal]
  - Rheumatoid factor positive [Fatal]
  - Rheumatoid arthritis [Fatal]
  - Pulmonary fibrosis [Fatal]
  - Rheumatic fever [Fatal]
  - Type 2 diabetes mellitus [Fatal]
  - Abdominal pain upper [Fatal]
  - Alopecia [Fatal]
  - Confusional state [Fatal]
  - Decreased appetite [Fatal]
  - Depression [Fatal]
  - Diarrhoea [Fatal]
  - Drug hypersensitivity [Fatal]
  - Dyspepsia [Fatal]
  - Dyspnoea [Fatal]
  - Fatigue [Fatal]
  - Fluid retention [Fatal]
  - Hypersensitivity [Fatal]
  - Hypertension [Fatal]
  - Infection [Fatal]
  - Malaise [Fatal]
  - Nausea [Fatal]
  - Oedema [Fatal]
  - Pneumonia [Fatal]
  - Pyrexia [Fatal]
  - Rash [Fatal]
  - Stomatitis [Fatal]
  - Urticaria [Fatal]
  - Vomiting [Fatal]
  - Weight decreased [Fatal]
  - Weight increased [Fatal]
  - Headache [Fatal]
  - Pruritus [Fatal]
  - Duodenal ulcer perforation [Fatal]
  - Liver injury [Fatal]
  - Hepatic enzyme increased [Fatal]
